FAERS Safety Report 10086237 (Version 2)
Quarter: 2014Q2

REPORT INFORMATION
  Report Type: Spontaneous
  Country: BR (occurrence: BR)
  Receive Date: 20140418
  Receipt Date: 20140430
  Transmission Date: 20141212
  Serious: Yes (Hospitalization, Other)
  Sender: FDA-Public Use
  Company Number: BR-ASTRAZENECA-2014SE25657

PATIENT
  Age: 61 Year
  Sex: Male
  Weight: 77 kg

DRUGS (6)
  1. SELOZOK [Suspect]
     Indication: ARRHYTHMIA
     Route: 048
     Dates: start: 2013, end: 201403
  2. SELOZOK [Suspect]
     Indication: ARRHYTHMIA
     Route: 048
     Dates: start: 201403
  3. OMEPRAZOLE [Suspect]
     Indication: GASTROOESOPHAGEAL REFLUX DISEASE
     Route: 048
     Dates: start: 2013
  4. CRESTOR [Suspect]
     Indication: BLOOD CHOLESTEROL INCREASED
     Route: 048
     Dates: start: 2012
  5. ASPIRINA [Concomitant]
     Dosage: DAILY
     Route: 048
  6. AMLODIPINE [Concomitant]
     Indication: HYPERTENSION
     Route: 048
     Dates: end: 201403

REACTIONS (5)
  - Cardiomegaly [Recovered/Resolved]
  - Coronary artery occlusion [Recovered/Resolved]
  - Arrhythmia [Unknown]
  - Gastrooesophageal reflux disease [Unknown]
  - Off label use [Not Recovered/Not Resolved]
